FAERS Safety Report 22211359 (Version 1)
Quarter: 2023Q2

REPORT INFORMATION
  Report Type: Spontaneous
  Country: CA (occurrence: CA)
  Receive Date: 20230414
  Receipt Date: 20230414
  Transmission Date: 20230721
  Serious: Yes (Hospitalization, Other)
  Sender: FDA-Public Use
  Company Number: CA-BAYER-2023A048174

PATIENT
  Age: 42 Year
  Sex: Female

DRUGS (1)
  1. YASMIN [Suspect]
     Active Substance: DROSPIRENONE\ETHINYL ESTRADIOL
     Dosage: UNK
     Dates: start: 20090123, end: 20091221

REACTIONS (5)
  - Cardiac arrest [None]
  - Respiratory arrest [None]
  - Loss of consciousness [None]
  - Palpitations [None]
  - Pulse absent [None]

NARRATIVE: CASE EVENT DATE: 20091001
